FAERS Safety Report 4383888-2 (Version None)
Quarter: 2004Q2

REPORT INFORMATION
  Report Type: 
  Country: None (occurrence: None)
  Receive Date: 20040617
  Receipt Date: 20040603
  Transmission Date: 20050107
  Serious: Yes (Hospitalization)
  Sender: FDA-Public Use
  Company Number: 2004217161SE

PATIENT
  Age: 35 Year
  Sex: Female

DRUGS (2)
  1. CELEBREX [Suspect]
     Dosage: 200 MG, BID, ORAL
     Route: 048
     Dates: start: 20040128, end: 20040213
  2. PLAQUENIL [Suspect]
     Dosage: 200 MG, BID, ORAL
     Route: 048
     Dates: start: 20040128, end: 20040213

REACTIONS (3)
  - ECZEMA [None]
  - LIP DRY [None]
  - ORAL DISCOMFORT [None]
